FAERS Safety Report 6579316-9 (Version None)
Quarter: 2010Q1

REPORT INFORMATION
  Report Type: 
  Country: None (occurrence: None)
  Receive Date: 20100212
  Receipt Date: 20100204
  Transmission Date: 20100710
  Serious: Yes (Death, Hospitalization, Other)
  Sender: FDA-Public Use
  Company Number: JP-SANOFI-AVENTIS-F01200900373

PATIENT
  Age: 71 Year
  Sex: Female
  Weight: 33 kg

DRUGS (13)
  1. CLOPIDOGREL BISULFATE [Suspect]
     Indication: LACUNAR INFARCTION
     Route: 048
     Dates: start: 20081205, end: 20090117
  2. CLOPIDOGREL BISULFATE [Suspect]
     Route: 048
     Dates: start: 20090201, end: 20091016
  3. AMLODIPINE [Concomitant]
     Indication: HYPERTENSION
     Route: 048
     Dates: start: 20081122
  4. GASTER [Concomitant]
     Indication: GASTRIC ULCER
     Route: 048
     Dates: start: 20081121
  5. GASTER [Concomitant]
     Route: 042
     Dates: start: 20090127, end: 20090131
  6. EXCEGRAN [Concomitant]
     Route: 048
     Dates: start: 20081121
  7. SYMMETREL [Concomitant]
     Route: 048
     Dates: start: 20081205
  8. UNASYN [Concomitant]
     Route: 042
     Dates: start: 20081220, end: 20081231
  9. PENTCILLIN [Concomitant]
     Indication: PNEUMONIA
     Route: 042
     Dates: start: 20090108, end: 20090121
  10. ALEVIATIN [Concomitant]
     Route: 042
     Dates: start: 20090127, end: 20090131
  11. FLUMARIN [Concomitant]
     Indication: PNEUMONIA
     Route: 042
     Dates: start: 20090127, end: 20090204
  12. LOXONIN [Concomitant]
     Dosage: DOSE TEXT: 60 MG TID/PRN
     Route: 048
     Dates: start: 20081222, end: 20091224
  13. DASEN [Concomitant]
     Route: 048
     Dates: start: 20081222, end: 20091224

REACTIONS (5)
  - ANAEMIA [None]
  - CIRCULATORY COLLAPSE [None]
  - DIABETES MELLITUS [None]
  - PNEUMONIA [None]
  - STAPHYLOCOCCAL INFECTION [None]
